FAERS Safety Report 6228855-9 (Version None)
Quarter: 2009Q2

REPORT INFORMATION
  Report Type: 
  Country: None (occurrence: None)
  Receive Date: 20090615
  Receipt Date: 20080603
  Transmission Date: 20091009
  Serious: Yes (Other)
  Sender: FDA-Public Use
  Company Number: US-ASTRAZENECA-2008UW00353

PATIENT
  Age: 40 Year
  Sex: Female
  Weight: 114.3 kg

DRUGS (21)
  1. SEROQUEL [Suspect]
     Indication: BIPOLAR DISORDER
     Route: 048
     Dates: start: 19970101, end: 20031101
  2. SEROQUEL [Suspect]
     Route: 048
     Dates: start: 19970101, end: 20030101
  3. HALDOL [Concomitant]
     Dates: start: 20000101
  4. RISPERDAL [Concomitant]
     Dates: start: 19970101, end: 20000101
  5. PHENTERMINE [Concomitant]
     Dates: start: 20070101
  6. PROZAC [Concomitant]
  7. CELEXA [Concomitant]
  8. ZOLOFT [Concomitant]
  9. TRAZODONE HCL [Concomitant]
  10. LITHIUM [Concomitant]
     Dates: start: 20020101
  11. AMBIEN CR [Concomitant]
     Route: 048
  12. VALIUM [Concomitant]
     Route: 048
  13. HYDROCHLOROTHIAZIDE [Concomitant]
     Route: 048
  14. TRICOR [Concomitant]
     Route: 048
  15. METFORMIN HCL [Concomitant]
     Dosage: DAILY 500 MG/ 5 ML
     Route: 048
  16. REQUIP [Concomitant]
     Dosage: STRENGTH 1-2 MG, ONE EVERY NIGHT
     Route: 048
  17. ROXICODONE [Concomitant]
     Route: 048
  18. PREVACID [Concomitant]
     Dosage: 30-60 MG. AS REQUIRED
     Route: 048
  19. PHENTERMINE HCL [Concomitant]
     Route: 048
  20. DIFLUCAN [Concomitant]
     Route: 048
  21. TARKA [Concomitant]
     Dosage: STRENGHT 2/180 MG, 1 EVERYDAY

REACTIONS (17)
  - ANXIETY DISORDER [None]
  - ARTHROPATHY [None]
  - BLOOD CHOLESTEROL INCREASED [None]
  - CYST [None]
  - ESSENTIAL HYPERTENSION [None]
  - EYE DISORDER [None]
  - HYPERGLYCAEMIA [None]
  - HYPERSENSITIVITY [None]
  - HYPERTENSION [None]
  - HYPOGLYCAEMIA [None]
  - HYSTERECTOMY [None]
  - OBESITY [None]
  - PITUITARY TUMOUR [None]
  - RESTLESS LEGS SYNDROME [None]
  - SLEEP APNOEA SYNDROME [None]
  - TYPE 2 DIABETES MELLITUS [None]
  - WEIGHT INCREASED [None]
